FAERS Safety Report 6854071-3 (Version None)
Quarter: 2010Q3

REPORT INFORMATION
  Report Type: 
  Country: None (occurrence: None)
  Receive Date: 20100717
  Receipt Date: 20071226
  Transmission Date: 20110219
  Serious: No
  Sender: FDA-Public Use
  Company Number: US-PFIZER INC-2008000241

PATIENT
  Sex: Female
  Weight: 72.6 kg

DRUGS (15)
  1. CHANTIX [Suspect]
     Indication: SMOKING CESSATION THERAPY
     Dates: start: 20071221
  2. ABILIFY [Concomitant]
  3. LEXAPRO [Concomitant]
  4. DEPAKOTE [Concomitant]
  5. XANAX [Concomitant]
  6. DOC-Q-LACE [Concomitant]
  7. LEVOTHYROXINE SODIUM [Concomitant]
  8. ADVAIR DISKUS 100/50 [Concomitant]
  9. SPIRIVA [Concomitant]
  10. MONTELUKAST SODIUM [Concomitant]
  11. RANITIDINE [Concomitant]
  12. NAPROXEN [Concomitant]
  13. PLAVIX [Concomitant]
  14. LIPITOR [Concomitant]
  15. CLARINEX-D [Concomitant]

REACTIONS (2)
  - ANXIETY [None]
  - GASTRIC DISORDER [None]
